FAERS Safety Report 16565535 (Version 7)
Quarter: 2019Q4

REPORT INFORMATION
  Report Type: Report from Study
  Country: CL (occurrence: CL)
  Receive Date: 20190712
  Receipt Date: 20191112
  Transmission Date: 20200122
  Serious: Yes (Hospitalization, Other)
  Sender: FDA-Public Use
  Company Number: PHHY2019CL031615

PATIENT
  Age: 69 Year
  Sex: Female

DRUGS (14)
  1. FULVESTRANT. [Suspect]
     Active Substance: FULVESTRANT
     Indication: BREAST CANCER
     Dosage: UNK, QMO
     Route: 065
     Dates: start: 20190201
  2. KISQALI [Suspect]
     Active Substance: RIBOCICLIB
     Dosage: 600 MG, QD
     Route: 048
     Dates: start: 20190410
  3. KISQALI [Suspect]
     Active Substance: RIBOCICLIB
     Dosage: 600 MG, QD
     Route: 048
  4. OMEPRAZOLE. [Concomitant]
     Active Substance: OMEPRAZOLE
     Indication: PRODUCT USED FOR UNKNOWN INDICATION
     Dosage: 40 MG, QD
     Route: 065
  5. KISQALI [Suspect]
     Active Substance: RIBOCICLIB
     Dosage: 600 MG, QD
     Route: 048
     Dates: start: 20190501
  6. KISQALI [Suspect]
     Active Substance: RIBOCICLIB
     Indication: BREAST CANCER
     Dosage: 600 MG, UNK
     Route: 048
     Dates: start: 20190201
  7. KISQALI [Suspect]
     Active Substance: RIBOCICLIB
     Dosage: 600 MG, UNK
     Route: 048
  8. KISQALI [Suspect]
     Active Substance: RIBOCICLIB
     Dosage: 600 MG, QD
     Route: 048
     Dates: end: 20191015
  9. FULVESTRANT. [Suspect]
     Active Substance: FULVESTRANT
     Dosage: UNK
     Route: 065
     Dates: start: 20190329
  10. EUTIROX [Concomitant]
     Active Substance: LEVOTHYROXINE SODIUM
     Indication: PRODUCT USED FOR UNKNOWN INDICATION
     Dosage: 50 UG, QD
     Route: 048
  11. KISQALI [Suspect]
     Active Substance: RIBOCICLIB
     Dosage: 600 MG, QD
     Route: 048
     Dates: start: 20190329, end: 20190404
  12. KISQALI [Suspect]
     Active Substance: RIBOCICLIB
     Dosage: 600 MG, UNK
     Route: 048
  13. CAL D [Concomitant]
     Indication: PRODUCT USED FOR UNKNOWN INDICATION
     Dosage: 1 DF, QD
     Route: 048
  14. CLONAZEPAM. [Concomitant]
     Active Substance: CLONAZEPAM
     Indication: PRODUCT USED FOR UNKNOWN INDICATION
     Route: 065

REACTIONS (43)
  - Pruritus [Recovering/Resolving]
  - Tachycardia [Not Recovered/Not Resolved]
  - Skin sensitisation [Unknown]
  - Oral disorder [Unknown]
  - Red cell distribution width increased [Unknown]
  - Macrocytosis [Unknown]
  - Lymphocyte count decreased [Unknown]
  - Erythema [Unknown]
  - Hypersensitivity [Not Recovered/Not Resolved]
  - Abdominal pain upper [Recovering/Resolving]
  - Eating disorder [Unknown]
  - Confusional state [Unknown]
  - Abdominal discomfort [Recovered/Resolved]
  - Headache [Not Recovered/Not Resolved]
  - Hepatic enzyme abnormal [Unknown]
  - Pyrexia [Recovered/Resolved]
  - Irritable bowel syndrome [Unknown]
  - Cystitis [Recovering/Resolving]
  - Red blood cell count decreased [Unknown]
  - Neutrophil count decreased [Unknown]
  - Cystitis [Recovered/Resolved]
  - Anxiety [Unknown]
  - Depressed mood [Recovered/Resolved]
  - Nasopharyngitis [Not Recovered/Not Resolved]
  - Asthenia [Not Recovered/Not Resolved]
  - Nervousness [Unknown]
  - Anisocytosis [Unknown]
  - Decreased immune responsiveness [Unknown]
  - Gamma-glutamyltransferase increased [Unknown]
  - Alanine aminotransferase increased [Unknown]
  - Fatigue [Unknown]
  - Hepatic mass [Unknown]
  - Metastases to liver [Unknown]
  - Rash [Unknown]
  - Cough [Not Recovered/Not Resolved]
  - Mean cell haemoglobin increased [Unknown]
  - White blood cell count decreased [Unknown]
  - Acne [Unknown]
  - Discomfort [Unknown]
  - Anaemia [Unknown]
  - Mean cell volume increased [Unknown]
  - Aspartate aminotransferase increased [Unknown]
  - Urinary tract infection [Unknown]

NARRATIVE: CASE EVENT DATE: 20190201
